FAERS Safety Report 19120070 (Version 1)
Quarter: 2021Q2

REPORT INFORMATION
  Report Type: Spontaneous
  Country: US (occurrence: US)
  Receive Date: 20210412
  Receipt Date: 20210412
  Transmission Date: 20210717
  Serious: Yes (Other)
  Sender: FDA-Public Use
  Company Number: US-SA-2021SA116681

PATIENT

DRUGS (1)
  1. ZANTAC [Suspect]
     Active Substance: RANITIDINE HYDROCHLORIDE
     Route: 065
     Dates: start: 2004, end: 202001

REACTIONS (3)
  - Oesophageal carcinoma [Unknown]
  - Nasal neoplasm [Unknown]
  - Throat cancer [Unknown]

NARRATIVE: CASE EVENT DATE: 2017
